FAERS Safety Report 9375289 (Version 2)
Quarter: 2013Q3

REPORT INFORMATION
  Report Type: Report from Study
  Country: US (occurrence: US)
  Receive Date: 20130628
  Receipt Date: 20130711
  Transmission Date: 20140515
  Serious: Yes (Other)
  Sender: FDA-Public Use
  Company Number: US-ABBOTT-13P-163-1108936-00

PATIENT
  Age: 60 Year
  Sex: Female
  Weight: 59.93 kg

DRUGS (19)
  1. HUMIRA [Suspect]
     Indication: CROHN^S DISEASE
     Dates: start: 201208, end: 20130529
  2. HUMIRA [Suspect]
     Indication: ANKYLOSING SPONDYLITIS
  3. HUMIRA [Suspect]
     Indication: RHEUMATOID ARTHRITIS
  4. METHOTREXATE [Concomitant]
     Indication: CROHN^S DISEASE
  5. PENTASSA [Concomitant]
     Indication: CROHN^S DISEASE
  6. DONNATOL [Concomitant]
     Indication: CROHN^S DISEASE
  7. OXYCONTIN [Concomitant]
     Indication: PAIN
  8. OXY.IR [Concomitant]
     Indication: PAIN
  9. NEURONTIN [Concomitant]
     Indication: NEUROPATHY PERIPHERAL
  10. ROBAXIN [Concomitant]
     Indication: MUSCLE SPASMS
  11. BUPROPRION [Concomitant]
     Indication: PAIN
  12. VERAPAMIL [Concomitant]
     Indication: TACHYCARDIA
  13. ATENOLOL [Concomitant]
     Indication: TACHYCARDIA
  14. PREMARIN [Concomitant]
     Indication: HORMONE REPLACEMENT THERAPY
  15. OXYBUTININ [Concomitant]
     Indication: POLLAKIURIA
  16. PROVIGIL [Concomitant]
     Indication: FATIGUE
  17. FOSAMAX [Concomitant]
     Indication: OSTEOPOROSIS
  18. VITAMIN D NOS [Concomitant]
     Indication: VITAMIN D DEFICIENCY
  19. VALIUM [Concomitant]
     Indication: MUSCLE SPASMS

REACTIONS (3)
  - Erosive oesophagitis [Not Recovered/Not Resolved]
  - Diarrhoea [Not Recovered/Not Resolved]
  - Adenocarcinoma gastric [Not Recovered/Not Resolved]
